FAERS Safety Report 24837430 (Version 1)
Quarter: 2025Q1

REPORT INFORMATION
  Report Type: Spontaneous
  Country: IN (occurrence: None)
  Receive Date: 20250112
  Receipt Date: 20250112
  Transmission Date: 20250409
  Serious: Yes (Life-Threatening, Hospitalization, Disabling)
  Sender: FDA-CTU
  Company Number: None

PATIENT
  Age: 26 Year
  Sex: Male
  Weight: 82 kg

DRUGS (1)
  1. FINASTERIDE [Suspect]
     Active Substance: FINASTERIDE
     Indication: Androgenetic alopecia
     Dosage: OTHER QUANTITY : 1 TABLET(S);?FREQUENCY : DAILY;?
     Route: 048
     Dates: start: 20240517, end: 20240829

REACTIONS (10)
  - Coordination abnormal [None]
  - Fatigue [None]
  - Brain fog [None]
  - Insomnia [None]
  - Therapy cessation [None]
  - Muscular weakness [None]
  - Muscle twitching [None]
  - Tremor [None]
  - Gastrointestinal disorder [None]
  - Muscle atrophy [None]

NARRATIVE: CASE EVENT DATE: 20240830
